FAERS Safety Report 16067166 (Version 1)
Quarter: 2019Q1

REPORT INFORMATION
  Report Type: Report from Study
  Country: None (occurrence: US)
  Receive Date: 20190313
  Receipt Date: 20190313
  Transmission Date: 20190418
  Serious: Yes (Hospitalization, Other)
  Sender: FDA-Public Use
  Company Number: US-ABBVIE-19S-163-2699964-00

PATIENT
  Age: 35 Year
  Sex: Female

DRUGS (1)
  1. CREON [Suspect]
     Active Substance: PANCRELIPASE AMYLASE\PANCRELIPASE LIPASE\PANCRELIPASE PROTEASE
     Indication: PRODUCT USED FOR UNKNOWN INDICATION
     Route: 048

REACTIONS (8)
  - Abdominal pain [Unknown]
  - Debridement [Unknown]
  - Pancreatic fistula [Unknown]
  - Pancreatic stent placement [Unknown]
  - Retroperitoneal infection [Unknown]
  - Pseudocyst [Unknown]
  - Acute respiratory failure [Unknown]
  - Septic shock [Unknown]

NARRATIVE: CASE EVENT DATE: 20181220
